FAERS Safety Report 6063016-8 (Version None)
Quarter: 2009Q1

REPORT INFORMATION
  Report Type: 
  Country: None (occurrence: None)
  Receive Date: 20090203
  Receipt Date: 20090128
  Transmission Date: 20090719
  Serious: Yes (Hospitalization)
  Sender: FDA-Public Use
  Company Number: US-MERCK-0901USA04141

PATIENT
  Age: 72 Year
  Sex: Male

DRUGS (10)
  1. JANUVIA [Suspect]
     Indication: TYPE 2 DIABETES MELLITUS
     Route: 048
     Dates: start: 20080914
  2. JANUVIA [Suspect]
     Route: 048
  3. VYTORIN [Concomitant]
     Route: 048
  4. ACIPHEX [Concomitant]
     Route: 065
  5. FELODIPINE [Concomitant]
     Route: 065
  6. PERCOCET [Concomitant]
     Route: 065
  7. COLCHICINE [Concomitant]
     Route: 065
  8. DARVOCET-N 100 [Concomitant]
     Route: 065
  9. OMEGA-3 MARINE TRIGLYCERIDES [Concomitant]
     Route: 065
  10. ADVIL LIQUI-GELS [Concomitant]
     Route: 065

REACTIONS (1)
  - BLINDNESS UNILATERAL [None]
